FAERS Safety Report 5065904-8 (Version None)
Quarter: 2006Q3

REPORT INFORMATION
  Report Type: 
  Country: None (occurrence: None)
  Receive Date: 20060728
  Receipt Date: 20060728
  Transmission Date: 20061208
  Serious: Yes (Hospitalization)
  Sender: FDA-Public Use
  Company Number: None

PATIENT
  Age: 65 Year
  Sex: Male

DRUGS (2)
  1. LEVAQUIN [Suspect]
     Indication: INFECTION
     Dosage: 500MG  DAILY  IV   (3 DOSES)
     Route: 042
     Dates: start: 20060710, end: 20060713
  2. GLIMEPIRIDE [Suspect]
     Indication: DIABETES MELLITUS NON-INSULIN-DEPENDENT
     Dosage: 4MG  DAILY  PO
     Route: 048
     Dates: start: 20060701, end: 20060713

REACTIONS (5)
  - CONFUSIONAL STATE [None]
  - GANGRENE [None]
  - HYPOGLYCAEMIA [None]
  - POST PROCEDURAL COMPLICATION [None]
  - TOE AMPUTATION [None]
